FAERS Safety Report 9585668 (Version 3)
Quarter: 2013Q4

REPORT INFORMATION
  Report Type: Spontaneous
  Country: US (occurrence: US)
  Receive Date: 20131003
  Receipt Date: 20131022
  Transmission Date: 20140711
  Serious: Yes (Hospitalization, Other)
  Sender: FDA-Public Use
  Company Number: US-AMGEN-USASP2013068186

PATIENT
  Age: 80 Year
  Sex: Female
  Weight: 72.02 kg

DRUGS (41)
  1. PROLIA [Suspect]
     Indication: OSTEOPOROSIS POSTMENOPAUSAL
     Dosage: UNK UNK, Q6MO
     Route: 065
     Dates: start: 20130909
  2. PROLIA [Suspect]
     Indication: OSTEOARTHRITIS
  3. PROLIA [Suspect]
     Indication: RHEUMATOID ARTHRITIS
  4. COREG [Concomitant]
     Indication: BRADYCARDIA
     Dosage: 40 MG, QD
     Route: 048
  5. CITRICAL                           /00751501/ [Concomitant]
     Dosage: UNK UNK, QD
  6. LIPITOR [Concomitant]
     Dosage: 20 MG, QD
     Route: 048
     Dates: start: 20121227
  7. DIOVAN [Concomitant]
     Dosage: 320 MG, QD, MAINTANANCE DRUG
     Route: 048
     Dates: start: 20120118
  8. TOPAMAX [Concomitant]
     Dosage: 50 MG, QD
     Route: 048
     Dates: start: 20130211
  9. TYLENOL                            /00020001/ [Concomitant]
     Dosage: 500 MG, AS NECESSARY
     Route: 048
  10. ASPIRIN [Concomitant]
     Dosage: 81 MG, QD
     Route: 048
  11. VITAMIN B COMPLEX [Concomitant]
     Dosage: UNK UNK, QD
  12. IMDUR [Concomitant]
     Dosage: 30 MG, QD
     Route: 048
     Dates: start: 20130128
  13. NITROGLYCERINE [Concomitant]
     Dosage: UNK UNK, AS NECESSARY
     Route: 060
  14. ATIVAN [Concomitant]
     Dosage: 0.5 MG, AS NECESSARY
     Route: 048
  15. NEXIUM                             /01479302/ [Concomitant]
     Dosage: 40 MG, QD
     Route: 048
     Dates: start: 20130128, end: 20130726
  16. IBUPROFEN [Concomitant]
     Dosage: 800 MG, BID, AS NECESSARY
     Route: 048
  17. VITAMIN D                          /00107901/ [Concomitant]
     Dosage: 50000 UNIT, UNK
  18. COZAAR [Concomitant]
  19. VENTOLIN HFA [Concomitant]
     Dosage: 90 MUG, 2 PUFFS, AS NECESSARY
     Route: 045
  20. ONDANSETRON [Concomitant]
     Dosage: 4 MG, AS NECESSARY
     Route: 048
     Dates: start: 20130605
  21. FLOVENT [Concomitant]
     Dosage: 100 MUG, BID, 1 PUFF
     Route: 045
  22. SPIRIVA [Concomitant]
     Dosage: 18 MUG, QD
     Route: 045
     Dates: start: 20130605
  23. CALCIUM [Concomitant]
     Dosage: 50000 UNIT, UNK
     Dates: start: 20110607
  24. CLONIDINE [Concomitant]
     Dosage: 0.1 MG, AS NECESSARY
     Route: 048
     Dates: start: 20120430
  25. CITRACAL                           /00751520/ [Concomitant]
     Dosage: UNK
  26. AMOXICILLIN AND CLAVULANATE POTASSIUM [Concomitant]
     Dosage: 875 MG/ 125 MG, QD
  27. VITAMIN B12                        /00056201/ [Concomitant]
     Dosage: UNK
     Route: 048
  28. CIPROFLOXACIN [Concomitant]
     Dosage: 500 MG, BID
     Route: 048
  29. FERROUS SULFATE [Concomitant]
     Dosage: 300 MG, TID (60 MG IRON)
     Route: 048
  30. FLULAVAL [Concomitant]
     Dosage: 45 MUG (15 G X3)/0.5 ML, UNK
     Route: 030
     Dates: start: 2012, end: 2013
  31. FLUOCINONIDE [Concomitant]
     Dosage: 0.05 %, UNK
     Route: 061
  32. HYDROCHLOROTHIAZIDE [Concomitant]
     Dosage: 12.5 MG, QD
     Route: 048
  33. HYDROCODONE BITARTRATE AND ACETAMINOPHEN [Concomitant]
     Dosage: 5 MG/ 500 MG, QID
     Route: 048
  34. LIDOCAINE [Concomitant]
     Dosage: 2 %, UNK
  35. NORVASC [Concomitant]
     Dosage: 5 MG, QD
     Route: 048
  36. OMEPRAZOLE [Concomitant]
     Dosage: 20 MG, 2 TAB, QD
     Route: 048
  37. PANTOPRAZOLE [Concomitant]
     Dosage: 40 MG, QD
     Route: 048
  38. PREDNISONE [Concomitant]
     Dosage: 10 MG, UNK
     Route: 048
  39. SIMVASTATIN [Concomitant]
     Dosage: 40 MG, UNK
  40. VALIUM [Concomitant]
     Dosage: UNK
     Route: 048
  41. ZYRTEC [Concomitant]
     Dosage: UNK
     Route: 048

REACTIONS (21)
  - Dizziness [Recovered/Resolved]
  - Aphasia [Not Recovered/Not Resolved]
  - Abasia [Unknown]
  - Neck pain [Unknown]
  - Sinus bradycardia [Recovered/Resolved]
  - Humerus fracture [Unknown]
  - Atrioventricular block [Unknown]
  - Vertigo [Recovered/Resolved]
  - Syncope [Unknown]
  - Blood pressure abnormal [Unknown]
  - Back pain [Unknown]
  - Haemoglobin decreased [Unknown]
  - Bronchitis [Unknown]
  - Bronchospasm [Unknown]
  - Gastrooesophageal reflux disease [Unknown]
  - Muscle spasms [Unknown]
  - Local swelling [Unknown]
  - Malaise [Unknown]
  - Fatigue [Unknown]
  - Visual impairment [Unknown]
  - Dermatitis [Unknown]
